FAERS Safety Report 8286805-8 (Version None)
Quarter: 2012Q2

REPORT INFORMATION
  Report Type: 
  Country: None (occurrence: None)
  Receive Date: 20120416
  Receipt Date: 20120406
  Transmission Date: 20120825
  Serious: Yes (Hospitalization)
  Sender: FDA-Public Use
  Company Number: JP-BRISTOL-MYERS SQUIBB COMPANY-16467995

PATIENT
  Age: 47 Year
  Sex: Female

DRUGS (8)
  1. LORAZEPAM [Concomitant]
     Dosage: TAB
  2. DORAL [Concomitant]
     Dosage: TAB
  3. AKINETON [Suspect]
     Route: 048
     Dates: end: 20120312
  4. MAGNESIUM SULFATE [Concomitant]
  5. ABILIFY [Suspect]
     Indication: SCHIZOPHRENIA
     Dosage: FORMULATION:12MG TABS
     Route: 048
     Dates: end: 20120315
  6. FERROUS CITRATE [Concomitant]
  7. LENDORMIN [Concomitant]
     Dosage: TAB
  8. ROHYPNOL [Concomitant]
     Dosage: TAB

REACTIONS (2)
  - INTESTINAL OBSTRUCTION [None]
  - ILEUS [None]
